FAERS Safety Report 23909074 (Version 1)
Quarter: 2024Q2

REPORT INFORMATION
  Report Type: Spontaneous
  Country: BR (occurrence: BR)
  Receive Date: 20240528
  Receipt Date: 20240528
  Transmission Date: 20240716
  Serious: Yes (Other)
  Sender: FDA-Public Use
  Company Number: BR-BAYER-2024A075166

PATIENT
  Age: 77 Year
  Sex: Female

DRUGS (4)
  1. FINERENONE [Suspect]
     Active Substance: FINERENONE
     Dosage: 10 MG
  2. ENTRESTO [Concomitant]
     Active Substance: SACUBITRIL\VALSARTAN
  3. FUROSEMIDE COMPOSTO [Concomitant]
  4. AMIODARONE [Concomitant]
     Active Substance: AMIODARONE

REACTIONS (1)
  - Paraesthesia [None]

NARRATIVE: CASE EVENT DATE: 20240521
